FAERS Safety Report 14681746 (Version 4)
Quarter: 2018Q3

REPORT INFORMATION
  Report Type: Spontaneous
  Country: US (occurrence: US)
  Receive Date: 20180326
  Receipt Date: 20180817
  Transmission Date: 20181010
  Serious: Yes (Other)
  Sender: FDA-Public Use
  Company Number: US-VIFOR (INTERNATIONAL) INC.-VIT-2017-12130

PATIENT
  Age: 58 Year
  Sex: Female

DRUGS (23)
  1. SKELAXIN [Concomitant]
     Active Substance: METAXALONE
  2. VELTASSA [Suspect]
     Active Substance: PATIROMER
     Route: 048
     Dates: start: 20171019
  3. VELTASSA [Suspect]
     Active Substance: PATIROMER
     Indication: HYPERKALAEMIA
     Route: 048
     Dates: start: 20171006
  4. LEXAPRO [Concomitant]
     Active Substance: ESCITALOPRAM OXALATE
  5. ACETYLSALICYLIC ACID [Concomitant]
     Active Substance: ASPIRIN
  6. ERGOCALCIFEROL. [Concomitant]
     Active Substance: ERGOCALCIFEROL
  7. CALCITRIOL. [Concomitant]
     Active Substance: CALCITRIOL
  8. FOLIC ACID. [Concomitant]
     Active Substance: FOLIC ACID
  9. PROAIR HFA [Concomitant]
     Active Substance: ALBUTEROL SULFATE
  10. METAMUCIL [Concomitant]
     Active Substance: PLANTAGO SEED
  11. COLACE [Concomitant]
     Active Substance: DOCUSATE SODIUM
  12. SINGULAIR [Concomitant]
     Active Substance: MONTELUKAST SODIUM
  13. FISH OIL CONCENTRATE [Concomitant]
     Active Substance: FISH OIL
  14. CRESTOR [Concomitant]
     Active Substance: ROSUVASTATIN CALCIUM
  15. NEXIUM [Concomitant]
     Active Substance: ESOMEPRAZOLE MAGNESIUM
  16. MUCINEX [Concomitant]
     Active Substance: GUAIFENESIN
  17. CYANOCOBALAMIN. [Concomitant]
     Active Substance: CYANOCOBALAMIN
  18. AMLODIPINE BESILATE [Concomitant]
     Active Substance: AMLODIPINE BESYLATE
  19. CLONIDINE HYDROCHLORIDE. [Concomitant]
     Active Substance: CLONIDINE HYDROCHLORIDE
  20. HUMALOG [Concomitant]
     Active Substance: INSULIN LISPRO
  21. XANAX XR [Concomitant]
     Active Substance: ALPRAZOLAM
  22. FERROUS SULFATE. [Concomitant]
     Active Substance: FERROUS SULFATE
  23. LUNESTA [Concomitant]
     Active Substance: ESZOPICLONE

REACTIONS (7)
  - Nausea [Unknown]
  - Constipation [Recovering/Resolving]
  - Frequent bowel movements [Unknown]
  - Impaired gastric emptying [Unknown]
  - Blood potassium increased [Unknown]
  - Muscle spasms [Unknown]
  - Abdominal distension [Unknown]

NARRATIVE: CASE EVENT DATE: 201710
